FAERS Safety Report 25824108 (Version 2)
Quarter: 2025Q4

REPORT INFORMATION
  Report Type: Report from Study
  Country: US (occurrence: US)
  Receive Date: 20250919
  Receipt Date: 20251016
  Transmission Date: 20260117
  Serious: Yes (Other)
  Sender: BAYER HEALTHCARE PHARMACEUTICALS INC.
  Company Number: US-BAYER-2025A120693

PATIENT
  Age: 59 Year
  Sex: Male

DRUGS (2)
  1. STIVARGA [Suspect]
     Active Substance: REGORAFENIB MONOHYDRATE
     Indication: Nausea
     Dosage: UNK
  2. STIVARGA [Suspect]
     Active Substance: REGORAFENIB MONOHYDRATE
     Indication: Nausea
     Dosage: 40MG

REACTIONS (3)
  - Gastrointestinal disorder [Recovering/Resolving]
  - Product dose omission issue [None]
  - Product use in unapproved indication [None]

NARRATIVE: CASE EVENT DATE: 20251002
